FAERS Safety Report 15838678 (Version 5)
Quarter: 2024Q1

REPORT INFORMATION
  Report Type: Spontaneous
  Country: IT (occurrence: IT)
  Receive Date: 20190117
  Receipt Date: 20240308
  Transmission Date: 20240410
  Serious: Yes (Hospitalization, Other)
  Sender: FDA-Public Use
  Company Number: IT-ACRAF SPA-2019-017731

PATIENT
  Age: 32 Year
  Sex: Male
  Weight: 107 kg

DRUGS (5)
  1. ENANTONE LP [Suspect]
     Active Substance: LEUPROLIDE ACETATE
     Indication: Supplementation therapy
     Route: 065
  2. STANOZOLOL [Suspect]
     Active Substance: STANOZOLOL
     Indication: Supplementation therapy
     Route: 048
  3. STANOZOLOL [Suspect]
     Active Substance: STANOZOLOL
     Indication: Supplementation therapy
     Route: 048
  4. IBUPROFEN [Suspect]
     Active Substance: IBUPROFEN
     Indication: Pain in extremity
     Route: 065
     Dates: start: 2014, end: 2015
  5. CREATINE [Suspect]
     Active Substance: CREATINE
     Indication: Supplementation therapy
     Route: 065

REACTIONS (3)
  - Chronic kidney disease [Recovering/Resolving]
  - Drug abuse [Recovering/Resolving]
  - Focal segmental glomerulosclerosis [Recovering/Resolving]
